FAERS Safety Report 4730230-0 (Version None)
Quarter: 2005Q3

REPORT INFORMATION
  Report Type: 
  Country: None (occurrence: None)
  Receive Date: 20050728
  Receipt Date: 20050725
  Transmission Date: 20060218
  Serious: Yes (Other)
  Sender: FDA-Public Use
  Company Number: 200510453BNE

PATIENT
  Age: 74 Year
  Sex: Male
  Weight: 66.3 kg

DRUGS (4)
  1. CIPROFLOXACIN [Suspect]
     Indication: ATYPICAL MYCOBACTERIAL INFECTION
     Dosage: 500 MG, BID, ORAL
     Route: 048
     Dates: start: 20010101
  2. CLARITHROMYCIN [Suspect]
     Indication: ATYPICAL MYCOBACTERIAL INFECTION
     Dosage: 500 MG, BID, ORAL
     Route: 048
     Dates: start: 20010101
  3. RANITIDINE [Concomitant]
  4. ETHAMBUTOL HYDROCHLORIDE [Concomitant]

REACTIONS (1)
  - CORNEAL DEPOSITS [None]
